FAERS Safety Report 9529449 (Version 1)
Quarter: 2013Q3

REPORT INFORMATION
  Report Type: Spontaneous
  Country: HU (occurrence: HU)
  Receive Date: 20130917
  Receipt Date: 20130917
  Transmission Date: 20140515
  Serious: Yes (Other)
  Sender: FDA-Public Use
  Company Number: HU-JNJFOC-20130906191

PATIENT
  Sex: Female
  Weight: 60 kg

DRUGS (7)
  1. REMICADE [Suspect]
     Indication: CROHN^S DISEASE
     Dosage: STRENGTH 100 MG
     Route: 042
     Dates: start: 20130725
  2. REMICADE [Suspect]
     Indication: CROHN^S DISEASE
     Dosage: STRENGTH 100 MG
     Route: 042
     Dates: start: 20120629
  3. REMICADE [Suspect]
     Indication: CROHN^S DISEASE
     Route: 042
     Dates: start: 20130909, end: 20130909
  4. KLION [Concomitant]
     Route: 048
     Dates: start: 20120629
  5. PENTASA [Concomitant]
     Route: 048
     Dates: start: 1993
  6. BUDENOFALK [Concomitant]
     Route: 048
     Dates: start: 1993
  7. NEO-FERRO-FOLGAMMA [Concomitant]
     Route: 048
     Dates: start: 2011

REACTIONS (9)
  - Erythema [Recovered/Resolved]
  - Dermatitis allergic [Recovered/Resolved]
  - Chest discomfort [Recovered/Resolved]
  - Dyspnoea [Recovered/Resolved]
  - Lip swelling [Recovered/Resolved]
  - Infusion related reaction [Recovered/Resolved]
  - Fistula [Unknown]
  - Crohn^s disease [Unknown]
  - Therapeutic response decreased [Unknown]
